FAERS Safety Report 6101111-5 (Version None)
Quarter: 2009Q1

REPORT INFORMATION
  Report Type: 
  Country: None (occurrence: None)
  Receive Date: 20090227
  Receipt Date: 20090219
  Transmission Date: 20090719
  Serious: Yes (Death)
  Sender: FDA-Public Use
  Company Number: KV200900211

PATIENT
  Age: 67 Year
  Sex: Male

DRUGS (13)
  1. ISOSORBIDE MONONITRATE [Suspect]
     Indication: DRUG USE FOR UNKNOWN INDICATION
     Dosage: ORAL
     Route: 048
  2. HYDROCHLOROTHIAZIDE [Concomitant]
  3. COUMADIN [Concomitant]
  4. LISINOPRIL [Concomitant]
  5. NORVASC [Concomitant]
  6. ZETIA [Concomitant]
  7. GLIMEPIRIDE [Concomitant]
  8. TRICOR [Concomitant]
  9. CELEBREX [Concomitant]
  10. ASPIRIN [Concomitant]
  11. VITAMIN NOS (VITAMIN NOS) [Concomitant]
  12. METFORMIN HCL [Concomitant]
  13. EYE DROPS (NOS) [Concomitant]

REACTIONS (1)
  - PRODUCT QUALITY ISSUE [None]
